FAERS Safety Report 8970411 (Version 1)
Quarter: 2012Q4

REPORT INFORMATION
  Report Type: 
  Country: US (occurrence: US)
  Receive Date: 20121218
  Receipt Date: 20121218
  Transmission Date: 20130627
  Serious: No
  Sender: FDA-Public Use
  Company Number: US-BRISTOL-MYERS SQUIBB COMPANY-16495806

PATIENT
  Age: 60 Year
  Sex: Male
  Weight: 97.5 kg

DRUGS (3)
  1. ABILIFY [Suspect]
     Indication: DEPRESSION
  2. ZOLOFT [Suspect]
  3. NIASPAN [Concomitant]

REACTIONS (3)
  - Gingival swelling [Unknown]
  - Stomatitis [Unknown]
  - Glossodynia [Unknown]
